FAERS Safety Report 13550417 (Version 1)
Quarter: 2017Q2

REPORT INFORMATION
  Report Type: Spontaneous
  Country: US (occurrence: US)
  Receive Date: 20170516
  Receipt Date: 20170516
  Transmission Date: 20170830
  Serious: Yes (Hospitalization)
  Sender: FDA-Public Use
  Company Number: None

PATIENT
  Age: 83 Year
  Sex: Female
  Weight: 75.8 kg

DRUGS (11)
  1. TOPROL XL [Concomitant]
     Active Substance: METOPROLOL SUCCINATE
  2. DILACOR XR [Concomitant]
     Active Substance: DILTIAZEM HYDROCHLORIDE
  3. PEPCID [Concomitant]
     Active Substance: FAMOTIDINE
  4. ADVIL [Suspect]
     Active Substance: IBUPROFEN
  5. XALATAN [Suspect]
     Active Substance: LATANOPROST
  6. APAP [Concomitant]
     Active Substance: ACETAMINOPHEN
  7. HALDOL [Concomitant]
     Active Substance: HALOPERIDOL
  8. MELATONIN [Concomitant]
     Active Substance: MELATONIN
  9. HYDROMORPHONE [Suspect]
     Active Substance: HYDROMORPHONE
     Indication: PAIN
     Route: 042
  10. COLACE [Concomitant]
     Active Substance: DOCUSATE SODIUM
  11. LASIX [Concomitant]
     Active Substance: FUROSEMIDE

REACTIONS (3)
  - Femoral neck fracture [None]
  - Fall [None]
  - Unresponsive to stimuli [None]

NARRATIVE: CASE EVENT DATE: 20170404
